FAERS Safety Report 12799363 (Version 2)
Quarter: 2016Q4

REPORT INFORMATION
  Report Type: Report from Study
  Country: US (occurrence: US)
  Receive Date: 20160930
  Receipt Date: 20161004
  Transmission Date: 20170207
  Serious: Yes (Other)
  Sender: FDA-Public Use
  Company Number: US-JNJFOC-20160926678

PATIENT
  Age: 64 Year
  Sex: Male
  Weight: 113.4 kg

DRUGS (3)
  1. INVOKAMET [Suspect]
     Active Substance: CANAGLIFLOZIN\METFORMIN HYDROCHLORIDE
     Indication: TYPE 2 DIABETES MELLITUS
     Route: 048
  2. INVOKAMET [Suspect]
     Active Substance: CANAGLIFLOZIN\METFORMIN HYDROCHLORIDE
     Indication: TYPE 2 DIABETES MELLITUS
     Dosage: DOSE WAS 150/1000MG
     Route: 048
     Dates: start: 20160917, end: 20160925
  3. INVOKAMET [Suspect]
     Active Substance: CANAGLIFLOZIN\METFORMIN HYDROCHLORIDE
     Indication: TYPE 2 DIABETES MELLITUS
     Dosage: DOSE WAS 150/1000MG
     Route: 048
     Dates: start: 20160713, end: 20160916

REACTIONS (6)
  - Weight decreased [Unknown]
  - Malaise [Unknown]
  - Inappropriate schedule of drug administration [Unknown]
  - Dehydration [Unknown]
  - Dizziness [Unknown]
  - Product label issue [Unknown]

NARRATIVE: CASE EVENT DATE: 201608
